FAERS Safety Report 15330953 (Version 1)
Quarter: 2018Q3

REPORT INFORMATION
  Report Type: Spontaneous
  Country: US (occurrence: US)
  Receive Date: 20180829
  Receipt Date: 20180829
  Transmission Date: 20181010
  Serious: No
  Sender: FDA-Public Use
  Company Number: US-PFIZER INC-2018346579

PATIENT

DRUGS (1)
  1. ADVIL PM [Suspect]
     Active Substance: DIPHENHYDRAMINE CITRATE\IBUPROFEN
     Indication: CIRCADIAN RHYTHM SLEEP DISORDER
     Dosage: UNK

REACTIONS (2)
  - Somnolence [Unknown]
  - Intentional product misuse [Unknown]
